FAERS Safety Report 13638695 (Version 1)
Quarter: 2017Q2

REPORT INFORMATION
  Report Type: Spontaneous
  Country: FR (occurrence: FR)
  Receive Date: 20170609
  Receipt Date: 20170609
  Transmission Date: 20170830
  Serious: Yes (Congenital Anomaly, Other)
  Sender: FDA-Public Use
  Company Number: FR-ELI_LILLY_AND_COMPANY-FR201705011516

PATIENT
  Age: 1 Day
  Sex: Female

DRUGS (18)
  1. TERALITHE [Suspect]
     Active Substance: LITHIUM CARBONATE
     Indication: BIPOLAR DISORDER
     Dosage: 2000 MG, DAILY
     Route: 064
  2. TERALITHE [Suspect]
     Active Substance: LITHIUM CARBONATE
     Dosage: 1500 MG, DAILY
     Route: 064
  3. TERALITHE [Suspect]
     Active Substance: LITHIUM CARBONATE
     Dosage: 2000 MG, DAILY
     Route: 064
     Dates: end: 20120711
  4. THERALENE [Suspect]
     Active Substance: TRIMEPRAZINE
     Dosage: 5 GTT, DAILY
     Route: 064
     Dates: end: 20120711
  5. STILNOX [Suspect]
     Active Substance: ZOLPIDEM TARTRATE
     Dosage: 5 MG, DAILY
     Route: 064
     Dates: end: 20120711
  6. ZYPREXA [Suspect]
     Active Substance: OLANZAPINE
     Indication: BIPOLAR DISORDER
     Dosage: 7.5 MG, DAILY
     Route: 064
     Dates: end: 20120711
  7. THERALENE [Suspect]
     Active Substance: TRIMEPRAZINE
     Indication: BIPOLAR DISORDER
     Dosage: 20 GTT, DAILY
     Route: 064
  8. THERALENE [Suspect]
     Active Substance: TRIMEPRAZINE
     Dosage: 5 GTT, DAILY
     Route: 064
     Dates: end: 20120711
  9. STILNOX [Suspect]
     Active Substance: ZOLPIDEM TARTRATE
     Indication: BIPOLAR DISORDER
     Dosage: 10 MG, DAILY
     Route: 064
  10. EFFEXOR [Suspect]
     Active Substance: VENLAFAXINE HYDROCHLORIDE
     Indication: BIPOLAR DISORDER
     Dosage: 75 MG, DAILY
     Route: 064
     Dates: end: 20120711
  11. STILNOX [Suspect]
     Active Substance: ZOLPIDEM TARTRATE
     Indication: BIPOLAR DISORDER
     Dosage: 10 MG, DAILY
     Route: 064
  12. TERALITHE [Suspect]
     Active Substance: LITHIUM CARBONATE
     Indication: BIPOLAR DISORDER
     Dosage: 2000 MG, DAILY
     Route: 064
  13. TERALITHE [Suspect]
     Active Substance: LITHIUM CARBONATE
     Dosage: 1500 MG, DAILY
     Route: 064
  14. EFFEXOR [Suspect]
     Active Substance: VENLAFAXINE HYDROCHLORIDE
     Indication: BIPOLAR DISORDER
     Dosage: 75 MG, DAILY
     Route: 064
     Dates: end: 20120711
  15. TERALITHE [Suspect]
     Active Substance: LITHIUM CARBONATE
     Dosage: 2000 MG, DAILY
     Route: 064
     Dates: end: 20120711
  16. THERALENE [Suspect]
     Active Substance: TRIMEPRAZINE
     Indication: BIPOLAR DISORDER
     Dosage: 20 GTT, DAILY
     Route: 064
  17. ZYPREXA [Suspect]
     Active Substance: OLANZAPINE
     Indication: BIPOLAR DISORDER
     Dosage: 7.5 MG, DAILY
     Route: 064
     Dates: end: 20120711
  18. STILNOX [Suspect]
     Active Substance: ZOLPIDEM TARTRATE
     Dosage: 5 MG, DAILY
     Route: 064
     Dates: end: 20120711

REACTIONS (5)
  - Foetal arrhythmia [Unknown]
  - Hypertonia neonatal [Recovered/Resolved]
  - Atrial septal defect [Recovered/Resolved]
  - Hypotonia neonatal [Recovered/Resolved]
  - Foetal exposure during pregnancy [Recovered/Resolved]

NARRATIVE: CASE EVENT DATE: 20120712
